FAERS Safety Report 25685000 (Version 1)
Quarter: 2025Q3

REPORT INFORMATION
  Report Type: Spontaneous
  Country: US (occurrence: US)
  Receive Date: 20250815
  Receipt Date: 20250815
  Transmission Date: 20251021
  Serious: No
  Sender: PUMA
  Company Number: US-PUMA BIOTECHNOLOGY, LTD.-2024-PUM-US001608

PATIENT

DRUGS (1)
  1. NERATINIB [Suspect]
     Active Substance: NERATINIB
     Indication: Product used for unknown indication
     Dosage: 40 MG, DAILY
     Route: 048
     Dates: start: 20241124, end: 2024

REACTIONS (3)
  - Diarrhoea [Unknown]
  - Abdominal pain upper [Unknown]
  - Underdose [Unknown]

NARRATIVE: CASE EVENT DATE: 20241201
